FAERS Safety Report 17024978 (Version 2)
Quarter: 2020Q3

REPORT INFORMATION
  Report Type: Report from Study
  Country: RO (occurrence: RO)
  Receive Date: 20191113
  Receipt Date: 20200708
  Transmission Date: 20201102
  Serious: Yes (Hospitalization)
  Sender: FDA-Public Use
  Company Number: RO-GILEAD-2019-0437096

PATIENT
  Age: 70 Year
  Sex: Female

DRUGS (10)
  1. BETASERC [Concomitant]
     Active Substance: BETAHISTINE
  2. CONCOR [Concomitant]
     Active Substance: BISOPROLOL FUMARATE
  3. RIVOTRIL [Concomitant]
     Active Substance: CLONAZEPAM
  4. CEBRIUM [FLUNARIZINE DIHYDROCHLORIDE] [Concomitant]
  5. PRESTARIUM [PERINDOPRIL] [Concomitant]
  6. BILOBIL FORTE [Concomitant]
  7. ANXIAR [Concomitant]
     Active Substance: LORAZEPAM
  8. PLAVIX [Concomitant]
     Active Substance: CLOPIDOGREL BISULFATE
  9. SILIMARINA [Concomitant]
  10. LEDIPASVIR/SOFOSBUVIR [Suspect]
     Active Substance: LEDIPASVIR\SOFOSBUVIR
     Indication: CHRONIC HEPATITIS C
     Dosage: 1 DOSAGE FORM, QD
     Route: 048
     Dates: start: 20190807, end: 20191029

REACTIONS (6)
  - Abdominal distension [Not Recovered/Not Resolved]
  - Nervous system disorder [Not Recovered/Not Resolved]
  - Hepatic pain [Not Recovered/Not Resolved]
  - Dizziness [Recovered/Resolved]
  - Headache [Not Recovered/Not Resolved]
  - Abdominal distension [Not Recovered/Not Resolved]

NARRATIVE: CASE EVENT DATE: 20190807
